FAERS Safety Report 9647324 (Version 1)
Quarter: 2013Q4

REPORT INFORMATION
  Report Type: Spontaneous
  Country: US (occurrence: US)
  Receive Date: 20131027
  Receipt Date: 20131027
  Transmission Date: 20140711
  Serious: Yes (Other)
  Sender: FDA-Public Use
  Company Number: US-NAPPMUNDI-USA-2013-0106866

PATIENT
  Sex: Male

DRUGS (4)
  1. OXYCONTIN (NDA 22-272) [Suspect]
     Indication: DRUG DEPENDENCE
     Route: 048
  2. ADDERALL [Suspect]
     Indication: DRUG DEPENDENCE
     Route: 065
  3. SLEEPING PILLS [Suspect]
     Indication: DRUG DEPENDENCE
     Route: 048
  4. COCAINE [Suspect]
     Indication: SUBSTANCE ABUSE
     Route: 065

REACTIONS (1)
  - Polysubstance dependence [Recovered/Resolved]
